FAERS Safety Report 9190215 (Version 1)
Quarter: 2013Q1

REPORT INFORMATION
  Report Type: Spontaneous
  Country: US (occurrence: None)
  Receive Date: 20130325
  Receipt Date: 20130325
  Transmission Date: 20140127
  Serious: Yes (Hospitalization)
  Sender: FDA-Public Use
  Company Number: None

PATIENT
  Sex: Female

DRUGS (1)
  1. EXJADE 250MG NOVARTIS [Suspect]
     Indication: IRON OVERLOAD
     Dosage: 250MG  QD  PO
     Route: 048
     Dates: start: 20130306

REACTIONS (1)
  - Diarrhoea [None]
